FAERS Safety Report 8943608 (Version 1)
Quarter: 2012Q4

REPORT INFORMATION
  Report Type: 
  Country: IT (occurrence: IT)
  Receive Date: 20121203
  Receipt Date: 20121203
  Transmission Date: 20130627
  Serious: Yes (Hospitalization)
  Sender: FDA-Public Use
  Company Number: IT-TEVA-373167ISR

PATIENT
  Age: 49 Year
  Sex: Female

DRUGS (4)
  1. LORAZEPAM [Suspect]
     Indication: INTENTIONAL OVERDOSE
     Dosage: 150 Milligram Daily;
     Route: 048
     Dates: start: 20121126, end: 20121126
  2. LAMOTRIGINE [Suspect]
     Indication: INTENTIONAL OVERDOSE
     Route: 048
     Dates: start: 20121126, end: 20121126
  3. EN [Concomitant]
  4. SUPRADYN [Concomitant]

REACTIONS (5)
  - Intentional overdose [Recovering/Resolving]
  - Hypotension [Recovering/Resolving]
  - Eyelid oedema [Recovering/Resolving]
  - Periorbital haemorrhage [Recovering/Resolving]
  - Syncope [Recovering/Resolving]
